FAERS Safety Report 7341862-8 (Version None)
Quarter: 2011Q1

REPORT INFORMATION
  Report Type: 
  Country: None (occurrence: None)
  Receive Date: 20110309
  Receipt Date: 20110228
  Transmission Date: 20110831
  Serious: Yes (Other)
  Sender: FDA-Public Use
  Company Number: US-NAPPMUNDI-USA-2010-0047287

PATIENT
  Sex: Male

DRUGS (2)
  1. OXYCONTIN [Suspect]
     Dosage: 40 MG, TID
     Dates: start: 20100801, end: 20100801
  2. OXYCONTIN [Suspect]
     Indication: BACK PAIN
     Dosage: 120 MG, DAILY
     Dates: start: 20110207

REACTIONS (15)
  - PALPITATIONS [None]
  - GASTRIC DISORDER [None]
  - AGITATION [None]
  - NAUSEA [None]
  - MOUTH HAEMORRHAGE [None]
  - MALAISE [None]
  - HAEMOPTYSIS [None]
  - DYSURIA [None]
  - FEELING ABNORMAL [None]
  - INADEQUATE ANALGESIA [None]
  - PROSTATIC DISORDER [None]
  - EPISTAXIS [None]
  - DRUG INEFFECTIVE [None]
  - INCREASED UPPER AIRWAY SECRETION [None]
  - CHOKING [None]
